FAERS Safety Report 22828128 (Version 3)
Quarter: 2024Q1

REPORT INFORMATION
  Report Type: Spontaneous
  Country: US (occurrence: US)
  Receive Date: 20230816
  Receipt Date: 20240112
  Transmission Date: 20240409
  Serious: No
  Sender: FDA-Public Use
  Company Number: US-PFIZER INC-202300276608

PATIENT
  Age: 72 Year
  Sex: Female
  Weight: 56.236 kg

DRUGS (2)
  1. VYNDAMAX [Suspect]
     Active Substance: TAFAMIDIS
     Indication: Familial amyloidosis
     Dosage: 61 MG, 1X/DAY
     Dates: start: 20230429
  2. AMVUTTRA [Concomitant]
     Active Substance: VUTRISIRAN
     Dosage: UNK
     Dates: start: 20230623

REACTIONS (1)
  - Blood cholesterol increased [Unknown]
